FAERS Safety Report 8792375 (Version 1)
Quarter: 2012Q4

REPORT INFORMATION
  Report Type: 
  Country: US (occurrence: US)
  Receive Date: 20120918
  Receipt Date: 20120918
  Transmission Date: 20130627
  Serious: No
  Sender: FDA-Public Use
  Company Number: US-PFIZER INC-2012227352

PATIENT
  Age: 88 Year
  Sex: Female
  Weight: 68.03 kg

DRUGS (1)
  1. ADVIL [Suspect]
     Indication: BACK PAIN
     Dosage: 200 mg, 2x/day
     Route: 048
     Dates: start: 201208

REACTIONS (1)
  - Drug ineffective [Unknown]
